FAERS Safety Report 24753093 (Version 1)
Quarter: 2024Q4

REPORT INFORMATION
  Report Type: Spontaneous
  Country: US (occurrence: US)
  Receive Date: 20241219
  Receipt Date: 20241219
  Transmission Date: 20250115
  Serious: No
  Sender: Day One Biopharmaceuticals
  Company Number: US-Day One Biopharmaceuticals Inc.-2024US001255

PATIENT

DRUGS (2)
  1. OJEMDA [Suspect]
     Active Substance: TOVORAFENIB
     Indication: Glioma
     Dosage: UNKNOWN
     Route: 048
     Dates: start: 2024, end: 2024
  2. OJEMDA [Suspect]
     Active Substance: TOVORAFENIB
     Dosage: UNKNOWN
     Route: 048
     Dates: start: 2024

REACTIONS (3)
  - Dermatitis [Not Recovered/Not Resolved]
  - Acute haemorrhagic conjunctivitis [Not Recovered/Not Resolved]
  - Dermatitis acneiform [Not Recovered/Not Resolved]

NARRATIVE: CASE EVENT DATE: 20240101
